FAERS Safety Report 7312497-8 (Version None)
Quarter: 2011Q1

REPORT INFORMATION
  Report Type: 
  Country: None (occurrence: None)
  Receive Date: 20110214
  Receipt Date: 20110128
  Transmission Date: 20110831
  Serious: Yes (Death)
  Sender: FDA-Public Use
  Company Number: 2011-00159

PATIENT
  Age: 64 Year
  Sex: Male
  Weight: 70 kg

DRUGS (2)
  1. SIMVASTATIN [Suspect]
     Indication: HYPERCHOLESTEROLAEMIA
     Dosage: 40 MG (40 MG, 1 IN 1 D), ORAL
     Route: 048
     Dates: start: 20101015
  2. LEVOTHYROXINE, THYROXINE (THYROXINE) [Concomitant]

REACTIONS (2)
  - IDIOPATHIC THROMBOCYTOPENIC PURPURA [None]
  - CEREBRAL HAEMORRHAGE [None]
